FAERS Safety Report 9551470 (Version 1)
Quarter: 2013Q3

REPORT INFORMATION
  Report Type: Spontaneous
  Country: US (occurrence: None)
  Receive Date: 20130724
  Receipt Date: 20130724
  Transmission Date: 20140515
  Serious: Yes (Life-Threatening)
  Sender: FDA-Public Use
  Company Number: PHEH2013US006521

PATIENT
  Age: 66 Year
  Sex: Male

DRUGS (1)
  1. GLEEVEC [Suspect]
     Dosage: ONCE DAILY, ORAL
     Dates: start: 20130312, end: 20130313

REACTIONS (3)
  - Angioedema [None]
  - Swelling face [None]
  - Lip discolouration [None]
